FAERS Safety Report 6413449-2 (Version None)
Quarter: 2009Q4

REPORT INFORMATION
  Report Type: 
  Country: None (occurrence: None)
  Receive Date: 20091020
  Receipt Date: 20091009
  Transmission Date: 20100525
  Serious: Yes (Other)
  Sender: FDA-Public Use
  Company Number: DSA_41835_2009

PATIENT
  Age: 56 Year
  Sex: Male

DRUGS (4)
  1. BUPROPION HCL [Suspect]
     Indication: MAJOR DEPRESSION
     Dates: start: 20090101
  2. PLAVIX [Concomitant]
  3. ANTIHYPERTENSIVES [Concomitant]
  4. DIURETICS [Concomitant]

REACTIONS (1)
  - RENAL FAILURE ACUTE [None]
